FAERS Safety Report 7109303-3 (Version None)
Quarter: 2010Q4

REPORT INFORMATION
  Report Type: 
  Country: None (occurrence: None)
  Receive Date: 20101117
  Receipt Date: 20101104
  Transmission Date: 20110411
  Serious: Yes (Hospitalization)
  Sender: FDA-Public Use
  Company Number: TW-MYLANLABS-2010S1020662

PATIENT
  Age: 35 Year
  Sex: Female

DRUGS (2)
  1. CAFERGOT [Interacting]
     Indication: HEADACHE
     Dosage: 1MG ERGOTAMINE AND 100MG CAFFEINE.
     Route: 065
  2. ERYTHROMYCIN [Suspect]
     Indication: BRONCHITIS
     Route: 065

REACTIONS (4)
  - DRUG INTERACTION [None]
  - ERGOT POISONING [None]
  - PAIN IN EXTREMITY [None]
  - PARAESTHESIA [None]
